FAERS Safety Report 22201979 (Version 1)
Quarter: 2023Q2

REPORT INFORMATION
  Report Type: Spontaneous
  Country: US (occurrence: US)
  Receive Date: 20230412
  Receipt Date: 20230412
  Transmission Date: 20230722
  Serious: Yes (Other)
  Sender: FDA-Public Use
  Company Number: US-BAYER-2023A044241

PATIENT
  Age: 15 Year
  Sex: Male

DRUGS (2)
  1. ASPIRIN [Interacting]
     Active Substance: ASPIRIN
     Dosage: UNK
  2. WARFARIN [Interacting]
     Active Substance: WARFARIN
     Dosage: UNK

REACTIONS (4)
  - Labelled drug-drug interaction medication error [None]
  - Extradural haematoma [None]
  - Spinal cord compression [None]
  - Off label use [None]
